FAERS Safety Report 7058197-3 (Version None)
Quarter: 2010Q4

REPORT INFORMATION
  Report Type: 
  Country: None (occurrence: None)
  Receive Date: 20101022
  Receipt Date: 20101021
  Transmission Date: 20110411
  Serious: Yes (Death)
  Sender: FDA-Public Use
  Company Number: MX-BRISTOL-MYERS SQUIBB COMPANY-15338858

PATIENT
  Age: 76 Year
  Sex: Male

DRUGS (2)
  1. CYCLOPHOSPHAMIDE [Suspect]
     Indication: NON-HODGKIN'S LYMPHOMA
  2. ETOPOSIDE [Suspect]
     Indication: NON-HODGKIN'S LYMPHOMA
     Dosage: LAST DOSE 6 DAYS PRIOR TO ADMISSION

REACTIONS (1)
  - PURPURA FULMINANS [None]
